FAERS Safety Report 6501389-X (Version None)
Quarter: 2009Q4

REPORT INFORMATION
  Report Type: 
  Country: None (occurrence: None)
  Receive Date: 20091216
  Receipt Date: 20091204
  Transmission Date: 20100525
  Serious: Yes (Other)
  Sender: FDA-Public Use
  Company Number: US-BAYER-200834274NA

PATIENT
  Age: 21 Year
  Sex: Female

DRUGS (3)
  1. MIRENA [Suspect]
     Indication: CONTRACEPTION
     Dosage: CONTINUOUS
     Route: 015
     Dates: start: 20020101, end: 20050101
  2. MIRENA [Suspect]
     Dosage: DAILY CONTINUOUS
     Route: 015
     Dates: start: 20080908, end: 20080908
  3. MIRENA [Suspect]
     Dosage: CONTINUOUS
     Route: 015

REACTIONS (8)
  - ABORTION SPONTANEOUS [None]
  - BACK PAIN [None]
  - INFERTILITY FEMALE [None]
  - MOTION SICKNESS [None]
  - PREMATURE LABOUR [None]
  - UTERINE PERFORATION [None]
  - VAGINAL HAEMORRHAGE [None]
  - VAGINISMUS [None]
